FAERS Safety Report 16893952 (Version 1)
Quarter: 2019Q4

REPORT INFORMATION
  Report Type: Spontaneous
  Country: US (occurrence: US)
  Receive Date: 20191007
  Receipt Date: 20191007
  Transmission Date: 20200122
  Serious: Yes (Other)
  Sender: FDA-Public Use
  Company Number: None

PATIENT
  Age: 23 Year
  Sex: Female
  Weight: 74.84 kg

DRUGS (1)
  1. NEXPLANON [Suspect]
     Active Substance: ETONOGESTREL

REACTIONS (8)
  - Dizziness [None]
  - Hypoaesthesia [None]
  - Headache [None]
  - Fatigue [None]
  - Suicidal ideation [None]
  - Depression [None]
  - Haemoptysis [None]
  - Dyspnoea [None]
